FAERS Safety Report 16709285 (Version 3)
Quarter: 2019Q4

REPORT INFORMATION
  Report Type: Spontaneous
  Country: GB (occurrence: GB)
  Receive Date: 20190816
  Receipt Date: 20191206
  Transmission Date: 20200122
  Serious: Yes (Hospitalization, Other)
  Sender: FDA-Public Use
  Company Number: GB-DRREDDYS-GER/UKI/19/0113036

PATIENT
  Age: 41 Year
  Sex: Male

DRUGS (8)
  1. FEXOFENADINE HYDROCHLORIDE 180 [Suspect]
     Active Substance: FEXOFENADINE HYDROCHLORIDE
     Indication: PRURITUS
     Dosage: NIGHT
     Route: 048
     Dates: start: 20170929, end: 201905
  2. CLOPIDOGREL [Concomitant]
     Active Substance: CLOPIDOGREL BISULFATE
     Indication: PRODUCT USED FOR UNKNOWN INDICATION
     Dosage: NIGHT
  3. CICLOSPORIN 100MG [Concomitant]
     Indication: PRODUCT USED FOR UNKNOWN INDICATION
  4. QUESTRANLITE [Concomitant]
     Indication: PRODUCT USED FOR UNKNOWN INDICATION
  5. ATENOLOL 25MG [Concomitant]
     Active Substance: ATENOLOL
     Indication: PRODUCT USED FOR UNKNOWN INDICATION
  6. FLUOXETINE [Concomitant]
     Active Substance: FLUOXETINE HYDROCHLORIDE
     Indication: PRODUCT USED FOR UNKNOWN INDICATION
  7. FEXOFENADINE HYDROCHLORIDE 180 [Suspect]
     Active Substance: FEXOFENADINE HYDROCHLORIDE
     Indication: DERMATITIS ATOPIC
     Route: 048
     Dates: start: 20160705, end: 20170929
  8. FEXOFENADINE HYDROCHLORIDE 180 [Suspect]
     Active Substance: FEXOFENADINE HYDROCHLORIDE
     Indication: CHRONIC SPONTANEOUS URTICARIA
     Dosage: MORNING
     Route: 048
     Dates: start: 201905

REACTIONS (5)
  - Prescribed overdose [Unknown]
  - Nightmare [Unknown]
  - Insomnia [Unknown]
  - Seizure [Recovered/Resolved]
  - Fatigue [Unknown]

NARRATIVE: CASE EVENT DATE: 20190501
